FAERS Safety Report 21865527 (Version 4)
Quarter: 2023Q2

REPORT INFORMATION
  Report Type: Spontaneous
  Country: JP (occurrence: JP)
  Receive Date: 20230116
  Receipt Date: 20230407
  Transmission Date: 20230721
  Serious: Yes (Hospitalization, Other)
  Sender: FDA-Public Use
  Company Number: JP-ASTELLAS-2023JP000355

PATIENT
  Age: 65 Year
  Sex: Female

DRUGS (1)
  1. XOSPATA [Suspect]
     Active Substance: GILTERITINIB
     Indication: Acute myeloid leukaemia
     Route: 048
     Dates: start: 20221217, end: 20230116

REACTIONS (2)
  - Myelosuppression [Not Recovered/Not Resolved]
  - Enterococcal bacteraemia [Recovering/Resolving]

NARRATIVE: CASE EVENT DATE: 20230106
